FAERS Safety Report 5457864-2 (Version None)
Quarter: 2007Q3

REPORT INFORMATION
  Report Type: 
  Country: None (occurrence: None)
  Receive Date: 20070918
  Receipt Date: 20070906
  Transmission Date: 20080115
  Serious: Yes (Other)
  Sender: FDA-Public Use
  Company Number: US-PFIZER INC-2007075721

PATIENT
  Sex: Female
  Weight: 92.5 kg

DRUGS (5)
  1. LYRICA [Suspect]
     Indication: INTERVERTEBRAL DISC DEGENERATION
  2. DEPO-PROVERA SUSPENSION/INJ [Suspect]
     Indication: HAEMORRHAGE
  3. PRILOSEC [Concomitant]
  4. MOBIC [Concomitant]
  5. VITAMIN CAP [Concomitant]

REACTIONS (2)
  - DIZZINESS [None]
  - HORMONE LEVEL ABNORMAL [None]
